FAERS Safety Report 10434692 (Version 1)
Quarter: 2014Q2

REPORT INFORMATION
  Report Type: Spontaneous
  Country: US (occurrence: None)
  Receive Date: 20140530
  Receipt Date: 20140530
  Transmission Date: 20141212
  Serious: Yes (Other)
  Sender: FDA-Public Use
  Company Number: 397615N

PATIENT
  Age: 56 Year
  Sex: Female
  Weight: 65.3 kg

DRUGS (10)
  1. ACTIVELLA [Suspect]
     Indication: HOT FLUSH
     Route: 048
     Dates: start: 20060318, end: 20121114
  2. ACTIVELLA [Suspect]
     Indication: PRURITUS
     Route: 048
     Dates: start: 20060318, end: 20121114
  3. ACTIVELLA [Suspect]
     Indication: HOT FLUSH
     Route: 048
     Dates: start: 20080627, end: 20121114
  4. ACTIVELLA [Suspect]
     Indication: PRURITUS
     Route: 048
     Dates: start: 20080627, end: 20121114
  5. VIVELLE-DOT [Suspect]
     Indication: HOT FLUSH
     Route: 062
     Dates: start: 20081104, end: 20090911
  6. VIVELLE-DOT [Suspect]
     Indication: PRURITUS
     Route: 062
     Dates: start: 20081104, end: 20090911
  7. PREMPHASE [Suspect]
     Indication: HOT FLUSH
     Route: 048
     Dates: start: 20060829, end: 20070924
  8. PREMPHASE [Suspect]
     Indication: PRURITUS
     Route: 048
     Dates: start: 20060829, end: 20070924
  9. ANTIBIOTICS [Concomitant]
  10. CLOTRIMAZOLE (CLOTRIMAZOLE) [Concomitant]

REACTIONS (1)
  - Breast cancer stage III [None]
